FAERS Safety Report 14666323 (Version 1)
Quarter: 2018Q1

REPORT INFORMATION
  Report Type: Spontaneous
  Country: US (occurrence: US)
  Receive Date: 20180320
  Receipt Date: 20180320
  Transmission Date: 20180509
  Serious: Yes (Other)
  Sender: FDA-Public Use
  Company Number: None

PATIENT
  Age: 53 Year
  Sex: Female
  Weight: 86.4 kg

DRUGS (6)
  1. DICLOFENAC SOD [Suspect]
     Active Substance: DICLOFENAC SODIUM
     Indication: EPICONDYLITIS
     Dosage: ?          QUANTITY:1 TABLET(S);?
     Route: 048
     Dates: start: 20180319, end: 20180320
  2. ELBOW CUFF [Concomitant]
  3. FLONASE [Concomitant]
     Active Substance: FLUTICASONE PROPIONATE
  4. VITAMIN C [Concomitant]
     Active Substance: ASCORBIC ACID
  5. KNEE BRACE [Concomitant]
  6. SALMON OIL [Concomitant]
     Active Substance: FISH OIL

REACTIONS (7)
  - Dyspepsia [None]
  - Abdominal distension [None]
  - Abdominal discomfort [None]
  - Restless legs syndrome [None]
  - Fatigue [None]
  - Chest discomfort [None]
  - Heart rate increased [None]

NARRATIVE: CASE EVENT DATE: 20180320
